FAERS Safety Report 8405979-9 (Version None)
Quarter: 2012Q2

REPORT INFORMATION
  Report Type: 
  Country: None (occurrence: None)
  Receive Date: 20120604
  Receipt Date: 20120522
  Transmission Date: 20120825
  Serious: Yes (Hospitalization)
  Sender: FDA-Public Use
  Company Number: GB-US-EMD SERONO, INC.-7125375

PATIENT
  Sex: Male

DRUGS (4)
  1. LEVOTHYROXINE SODIUM [Concomitant]
     Indication: HYPOPITUITARISM
     Route: 048
  2. HYDROCORTISONE [Concomitant]
     Route: 048
  3. SAIZEN [Suspect]
     Indication: HYPOPITUITARISM
     Route: 058
     Dates: start: 20100103
  4. HYDROCORTISONE [Concomitant]
     Indication: HYPOPITUITARISM
     Route: 048

REACTIONS (1)
  - PNEUMONIA [None]
